FAERS Safety Report 19287505 (Version 1)
Quarter: 2021Q2

REPORT INFORMATION
  Report Type: Report from Study
  Country: None (occurrence: US)
  Receive Date: 20210522
  Receipt Date: 20210522
  Transmission Date: 20210717
  Serious: Yes (Hospitalization, Other)
  Sender: FDA-Public Use
  Company Number: US-ABBVIE-21K-163-3915068-00

PATIENT
  Age: 67 Year
  Sex: Female

DRUGS (2)
  1. HUMIRA [Suspect]
     Active Substance: ADALIMUMAB
     Route: 058
     Dates: start: 2021
  2. HUMIRA [Suspect]
     Active Substance: ADALIMUMAB
     Indication: RHEUMATOID ARTHRITIS
     Route: 058
     Dates: start: 20201231, end: 2021

REACTIONS (6)
  - Skin cancer [Unknown]
  - Fall [Unknown]
  - Malignant hypertension [Unknown]
  - Hospitalisation [Unknown]
  - Wrist fracture [Unknown]
  - Fungal skin infection [Unknown]

NARRATIVE: CASE EVENT DATE: 2021
